FAERS Safety Report 5195756-7 (Version None)
Quarter: 2006Q4

REPORT INFORMATION
  Report Type: 
  Country: None (occurrence: None)
  Receive Date: 20061227
  Receipt Date: 20061207
  Transmission Date: 20070319
  Serious: Yes (Other)
  Sender: FDA-Public Use
  Company Number: 2006BI015083

PATIENT
  Age: 48 Year
  Sex: Female

DRUGS (3)
  1. NATALIZUMAB [Suspect]
     Indication: MULTIPLE SCLEROSIS
     Dosage: 300 MG; QM; IV
     Route: 042
     Dates: start: 20060908, end: 20060908
  2. LEVOTHYROXINE SODIUM [Concomitant]
  3. COMBIVENT [Concomitant]

REACTIONS (15)
  - ALOPECIA [None]
  - BRONCHIECTASIS [None]
  - CULTURE URINE POSITIVE [None]
  - DECUBITUS ULCER [None]
  - DIARRHOEA [None]
  - HAEMOTHORAX [None]
  - LUNG ABSCESS [None]
  - MULTIPLE SCLEROSIS [None]
  - ORTHOSTATIC HYPOTENSION [None]
  - PLEURAL EFFUSION [None]
  - PNEUMONIA [None]
  - RESPIRATORY TRACT INFECTION [None]
  - SINUS CONGESTION [None]
  - STREPTOCOCCAL INFECTION [None]
  - VOMITING [None]
